FAERS Safety Report 7657319-0 (Version None)
Quarter: 2011Q3

REPORT INFORMATION
  Report Type: 
  Country: None (occurrence: None)
  Receive Date: 20110804
  Receipt Date: 20110728
  Transmission Date: 20111222
  Serious: Yes (Other)
  Sender: FDA-Public Use
  Company Number: PHHY2011FR66303

PATIENT
  Age: 43 Year
  Sex: Female
  Weight: 51 kg

DRUGS (1)
  1. EXTAVIA [Suspect]
     Indication: MULTIPLE SCLEROSIS
     Dosage: 1 DF, QOD
     Route: 058
     Dates: start: 20110503, end: 20110626

REACTIONS (2)
  - JAUNDICE [None]
  - HEPATITIS [None]
